FAERS Safety Report 23743705 (Version 1)
Quarter: 2024Q2

REPORT INFORMATION
  Report Type: Spontaneous
  Country: GB (occurrence: GB)
  Receive Date: 20240415
  Receipt Date: 20240415
  Transmission Date: 20240715
  Serious: Yes (Disabling)
  Sender: FDA-Public Use
  Company Number: None

PATIENT
  Age: 67 Year
  Sex: Female

DRUGS (13)
  1. HALOPERIDOL [Suspect]
     Active Substance: HALOPERIDOL
     Indication: Delirium
     Dosage: 1MG - 1.5MG 4 HOURLY PRN MAX 5MG IN 24 HOURS ;
     Route: 065
     Dates: start: 20200319, end: 20240321
  2. HALOPERIDOL [Suspect]
     Active Substance: HALOPERIDOL
     Indication: Delirium
     Route: 065
  3. AMOXICILLIN\CLAVULANATE POTASSIUM [Concomitant]
     Active Substance: AMOXICILLIN\CLAVULANATE POTASSIUM
     Indication: Infection
     Dates: start: 20240312, end: 20240317
  4. MIRTAZAPINE [Concomitant]
     Active Substance: MIRTAZAPINE
     Indication: Anxiety
     Dates: start: 20240315
  5. MAGNESIUM [Concomitant]
     Active Substance: MAGNESIUM
     Indication: Hyponatraemia
     Dates: start: 20240307, end: 20240312
  6. PIPERACILLIN AND TAZOBACTAM [Concomitant]
     Active Substance: PIPERACILLIN SODIUM\TAZOBACTAM SODIUM
     Indication: Infection
     Dates: start: 20240321, end: 20240322
  7. ACETAMINOPHEN [Concomitant]
     Active Substance: ACETAMINOPHEN
     Indication: Pain
     Dates: start: 20240228
  8. CODEINE [Concomitant]
     Active Substance: CODEINE
     Indication: Pain
     Dates: start: 20240310
  9. DEMECLOCYCLINE [Concomitant]
     Active Substance: DEMECLOCYCLINE
     Indication: Hyponatraemia
     Dates: start: 20240307
  10. POLYETHYLENE GLYCOLS [Concomitant]
     Active Substance: POLYETHYLENE GLYCOLS
     Indication: Constipation
     Dates: start: 20240315
  11. SANDO-K [Concomitant]
     Indication: Hyponatraemia
     Dates: start: 20240307, end: 20240309
  12. MIDAZOLAM [Concomitant]
     Active Substance: MIDAZOLAM
     Indication: Agitation
     Dates: start: 20240315
  13. TINZAPARIN [Concomitant]
     Active Substance: TINZAPARIN
     Dates: start: 20240228

REACTIONS (5)
  - Tremor [Recovered/Resolved]
  - Speech disorder [Recovered/Resolved]
  - Pyrexia [Recovered/Resolved]
  - Hypertension [Recovered/Resolved]
  - Dysphagia [Recovered/Resolved]

NARRATIVE: CASE EVENT DATE: 20240320
